FAERS Safety Report 21312127 (Version 1)
Quarter: 2022Q3

REPORT INFORMATION
  Report Type: Spontaneous
  Country: US (occurrence: None)
  Receive Date: 20220909
  Receipt Date: 20220909
  Transmission Date: 20221026
  Serious: No
  Sender: FDA-Public Use
  Company Number: US-ARIS GLOBAL-202204-0688

PATIENT
  Age: 90 Year
  Sex: Male
  Weight: 82.628 kg

DRUGS (18)
  1. OXERVATE [Suspect]
     Active Substance: CENEGERMIN-BKBJ
     Indication: Neurotrophic keratopathy
     Route: 047
     Dates: start: 20220406
  2. DURYSTA [Concomitant]
     Active Substance: BIMATOPROST
  3. RHOPRESSA [Concomitant]
     Active Substance: NETARSUDIL MESYLATE
  4. VESICARE [Concomitant]
     Active Substance: SOLIFENACIN SUCCINATE
  5. SODIUM CHLORIDE [Concomitant]
     Active Substance: SODIUM CHLORIDE
  6. MONTELUKAST SODIUM [Concomitant]
     Active Substance: MONTELUKAST SODIUM
  7. MYRBETRIQ [Concomitant]
     Active Substance: MIRABEGRON
     Dosage: 50 MG TABLET WITH 24 HOUR EXTENDED RELEASE
  8. FINASTERIDE [Concomitant]
     Active Substance: FINASTERIDE
  9. FAMOTIDINE [Concomitant]
     Active Substance: FAMOTIDINE
  10. COSOPT [Concomitant]
     Active Substance: DORZOLAMIDE HYDROCHLORIDE\TIMOLOL MALEATE
     Dosage: 22.3-6.8/1 DROPS
  11. DILTIAZEM [Concomitant]
     Active Substance: DILTIAZEM
     Dosage: 24 HOUR EXTENDED RELEASE (CONTROLLED DELIVERY)
  12. VITAMIN B12 [Concomitant]
     Active Substance: CYANOCOBALAMIN
  13. CITALOPRAM [Concomitant]
     Active Substance: CITALOPRAM HYDROBROMIDE
  14. ATORVASTATIN CALCIUM [Concomitant]
     Active Substance: ATORVASTATIN CALCIUM
  15. ELIQUIS [Concomitant]
     Active Substance: APIXABAN
  16. FOLIC ACID [Concomitant]
     Active Substance: FOLIC ACID
  17. VITAMIN D3 [Concomitant]
     Active Substance: CHOLECALCIFEROL
  18. PREDNISOLONE [Concomitant]
     Active Substance: PREDNISOLONE

REACTIONS (5)
  - Lacrimation increased [Recovering/Resolving]
  - Eye pain [Recovering/Resolving]
  - Eye swelling [Recovering/Resolving]
  - Ocular hyperaemia [Unknown]
  - Eye irritation [Unknown]

NARRATIVE: CASE EVENT DATE: 20220414
